FAERS Safety Report 9174337 (Version 2)
Quarter: 2013Q2

REPORT INFORMATION
  Report Type: Spontaneous
  Country: US (occurrence: US)
  Receive Date: 20130320
  Receipt Date: 20130410
  Transmission Date: 20140414
  Serious: Yes (Other)
  Sender: FDA-Public Use
  Company Number: PHEH2013US006307

PATIENT
  Sex: Female

DRUGS (4)
  1. TOBI [Suspect]
     Indication: INFECTIVE PULMONARY EXACERBATION OF CYSTIC FIBROSIS
     Dosage: 300 MG, BID
     Dates: start: 201102
  2. ALBUTEROL [Concomitant]
     Dosage: UNK UKN, UNK
  3. PULMOZYME [Concomitant]
     Dosage: UNK UKN, UNK
  4. CAYSTON [Concomitant]
     Dosage: UNK UKN, UNK

REACTIONS (3)
  - Lung infection [Unknown]
  - Pulmonary congestion [Unknown]
  - Pulmonary function test decreased [Unknown]
